FAERS Safety Report 4420285-5 (Version None)
Quarter: 2004Q3

REPORT INFORMATION
  Report Type: 
  Country: None (occurrence: None)
  Receive Date: 20040809
  Receipt Date: 20040330
  Transmission Date: 20050211
  Serious: Yes (Other)
  Sender: FDA-Public Use
  Company Number: US-GLAXOSMITHKLINE-A0505131A

PATIENT
  Age: 29 Year
  Sex: Female

DRUGS (6)
  1. PAXIL [Suspect]
     Indication: POSTPARTUM DEPRESSION
     Dosage: 20MG PER DAY
     Route: 048
     Dates: start: 19990501
  2. TEGRETOL [Concomitant]
  3. MAGNESIUM [Concomitant]
  4. VITAMIN B6 [Concomitant]
  5. VITAMIN B-12 [Concomitant]
  6. OMEGA 3 [Concomitant]

REACTIONS (8)
  - CONVULSION [None]
  - DIARRHOEA [None]
  - DIZZINESS [None]
  - ELECTRIC SHOCK [None]
  - FATIGUE [None]
  - INFLUENZA LIKE ILLNESS [None]
  - NAUSEA [None]
  - WEIGHT INCREASED [None]
